FAERS Safety Report 6005146 (Version 2)
Quarter: 2020Q3

REPORT INFORMATION
  Report Type: Spontaneous
  Country: NO (occurrence: NO)
  Receive Date: 20060315
  Receipt Date: 20060317
  Transmission Date: 20201104
  Serious: Yes (Life-Threatening)
  Sender: FDA-Public Use
  Company Number: NO-AVENTIS-200612310GDDC

PATIENT
  Age: 51 Year
  Sex: Female

DRUGS (9)
  1. FLAGYL [Suspect]
     Active Substance: METRONIDAZOLE\METRONIDAZOLE HYDROCHLORIDE
     Indication: ANTIBIOTIC PROPHYLAXIS
     Dosage: DOSE: 1.5 G
     Route: 042
     Dates: end: 20060223
  2. NOREPINEPHRINE. [Concomitant]
     Active Substance: NOREPINEPHRINE
     Dosage: DOSE: 0.03 MG/HR
     Route: 042
     Dates: start: 20060223
  3. FENTANYL. [Suspect]
     Active Substance: FENTANYL
     Indication: INDUCTION OF ANAESTHESIA
     Dosage: DOSE: 0.2 MG
     Dates: start: 20060215, end: 20060223
  4. PENTOTHAL [Suspect]
     Active Substance: THIOPENTAL SODIUM
     Indication: INDUCTION OF ANAESTHESIA
     Route: 042
     Dates: start: 20061215, end: 20061223
  5. NIMBEX [Suspect]
     Active Substance: CISATRACURIUM BESYLATE
     Indication: INDUCTION OF ANAESTHESIA
     Dosage: DOSE: 10 MG
     Route: 042
     Dates: start: 20060223, end: 20060223
  6. DROPERIDOL. [Suspect]
     Active Substance: DROPERIDOL
     Route: 042
     Dates: start: 20060212, end: 20060223
  7. EPHEDRINE. [Suspect]
     Active Substance: EPHEDRINE
     Dosage: DOSE: 10 MG KL 12.30
     Route: 042
     Dates: start: 20060223, end: 20060223
  8. DEXAMETHASONE. [Suspect]
     Active Substance: DEXAMETHASONE
     Dates: start: 20060223, end: 20060223
  9. EPHEDRINE. [Suspect]
     Active Substance: EPHEDRINE
     Dosage: DOSE: 25 MG KL 13.00
     Route: 030
     Dates: start: 20060223, end: 20060223

REACTIONS (3)
  - Hypotension [Recovered/Resolved]
  - Anaesthetic complication [None]
  - Hypoxia [Recovered/Resolved]
